FAERS Safety Report 9155972 (Version 1)
Quarter: 2013Q1

REPORT INFORMATION
  Report Type: Spontaneous
  Country: US (occurrence: US)
  Receive Date: 20130311
  Receipt Date: 20130311
  Transmission Date: 20140127
  Serious: Yes (Life-Threatening, Other)
  Sender: FDA-Public Use
  Company Number: US-BAYER-2013-028279

PATIENT
  Sex: 0

DRUGS (1)
  1. ALEVE CAPLET/TABLET,MIDOL EXTENDED RELIEF CAPLET [Suspect]
     Dosage: 2 DF, UNK

REACTIONS (10)
  - Loss of consciousness [None]
  - Haemorrhage [None]
  - Anaphylactic shock [None]
  - Hypoaesthesia oral [None]
  - Pruritus generalised [None]
  - Swollen tongue [None]
  - Pharyngeal oedema [None]
  - Loss of consciousness [None]
  - Swelling [None]
  - Dyspnoea [None]
